FAERS Safety Report 19997492 (Version 2)
Quarter: 2021Q4

REPORT INFORMATION
  Report Type: Spontaneous
  Country: BR (occurrence: BR)
  Receive Date: 20211026
  Receipt Date: 20211112
  Transmission Date: 20220304
  Serious: Yes (Life-Threatening)
  Sender: FDA-Public Use
  Company Number: BR-SA-SAC20211026000044

PATIENT
  Sex: Male
  Weight: 94 kg

DRUGS (8)
  1. THYMOGLOBULIN [Suspect]
     Active Substance: LAPINE T-LYMPHOCYTE IMMUNE GLOBULIN
     Indication: Immunosuppression
     Dosage: 300 MG
     Dates: start: 20210921, end: 20210922
  2. NOREPINEPHRINE [Concomitant]
     Active Substance: NOREPINEPHRINE
  3. HYDROCORTISONE [Concomitant]
     Active Substance: HYDROCORTISONE
     Dosage: 400 MG
     Dates: start: 20210921, end: 20210924
  4. CEFAZOLIN [Concomitant]
     Active Substance: CEFAZOLIN
     Dosage: 1 G
     Dates: start: 20210921, end: 20210922
  5. BENADRYL [Concomitant]
     Active Substance: DIPHENHYDRAMINE HYDROCHLORIDE
     Dosage: 50 MG/ML
     Dates: start: 20210921, end: 20210921
  6. DIPHENHYDRAMINE [Concomitant]
     Active Substance: DIPHENHYDRAMINE
     Dosage: 50 MG/ML
     Dates: start: 20210921, end: 20210921
  7. DIPYRONE [Concomitant]
     Active Substance: DIPYRONE
     Dates: start: 20210921, end: 20210921
  8. ACETAMINOPHEN [Concomitant]
     Active Substance: ACETAMINOPHEN
     Dosage: 200 MG/ML
     Dates: start: 20210921, end: 20210924

REACTIONS (2)
  - Tachypnoea [Recovered/Resolved]
  - Hypotension [Recovered/Resolved]

NARRATIVE: CASE EVENT DATE: 20210921
